FAERS Safety Report 9924747 (Version 1)
Quarter: 2014Q1

REPORT INFORMATION
  Report Type: Spontaneous
  Country: NO (occurrence: NO)
  Receive Date: 20140226
  Receipt Date: 20140226
  Transmission Date: 20141002
  Serious: Yes (Death, Other)
  Sender: FDA-Public Use
  Company Number: NO-ROXANE LABORATORIES, INC.-2014-RO-00251RO

PATIENT
  Age: 17 Year
  Sex: Female

DRUGS (5)
  1. METHOTREXATE [Suspect]
     Indication: OSTEOSARCOMA METASTATIC
     Route: 065
  2. DOXORUBICIN [Suspect]
     Indication: OSTEOSARCOMA METASTATIC
     Route: 065
  3. CISPLATIN [Suspect]
     Indication: OSTEOSARCOMA METASTATIC
     Route: 065
  4. ETOPOSIDE [Suspect]
     Indication: OSTEOSARCOMA METASTATIC
     Route: 065
  5. IFOSFAMIDE [Suspect]
     Indication: OSTEOSARCOMA METASTATIC
     Route: 065

REACTIONS (5)
  - Radiation pneumonitis [Fatal]
  - Pulmonary toxicity [Unknown]
  - Rash [Unknown]
  - Febrile neutropenia [Unknown]
  - Thrombocytopenia [Unknown]
